FAERS Safety Report 6929251-9 (Version None)
Quarter: 2010Q3

REPORT INFORMATION
  Report Type: 
  Country: None (occurrence: None)
  Receive Date: 20100812
  Receipt Date: 20100803
  Transmission Date: 20110219
  Serious: Yes (Hospitalization)
  Sender: FDA-Public Use
  Company Number: 2010EU003919

PATIENT
  Age: 55 Year
  Sex: Male

DRUGS (2)
  1. PROGRAF [Suspect]
     Dates: start: 20100201, end: 20100224
  2. CELLCEPT [Concomitant]

REACTIONS (7)
  - DELIRIUM [None]
  - HALLUCINATION [None]
  - NEUROTOXICITY [None]
  - OVERDOSE [None]
  - SOMNOLENCE [None]
  - SPEECH DISORDER [None]
  - TREMOR [None]
